FAERS Safety Report 25873907 (Version 1)
Quarter: 2025Q4

REPORT INFORMATION
  Report Type: Spontaneous
  Country: US (occurrence: None)
  Receive Date: 20251001
  Receipt Date: 20251001
  Transmission Date: 20260117
  Serious: No
  Sender: FDA-CTU
  Company Number: None

PATIENT
  Age: 21 Year
  Sex: Male

DRUGS (1)
  1. SKYRIZI [Suspect]
     Active Substance: RISANKIZUMAB-RZAA
     Indication: Crohn^s disease
     Dosage: OTHER STRENGTH : 360MG/2.4M;?OTHER FREQUENCY : EVERY 8 WEEKS;?
     Route: 058
     Dates: start: 20241114

REACTIONS (2)
  - Device delivery system issue [None]
  - Drug dose omission by device [None]

NARRATIVE: CASE EVENT DATE: 20250724
